FAERS Safety Report 23733332 (Version 1)
Quarter: 2024Q2

REPORT INFORMATION
  Report Type: Report from Study
  Country: IT (occurrence: IT)
  Receive Date: 20240411
  Receipt Date: 20240411
  Transmission Date: 20240716
  Serious: Yes (Other)
  Sender: FDA-Public Use
  Company Number: None

PATIENT
  Age: 63 Year
  Sex: Female

DRUGS (1)
  1. PACLITAXEL [Suspect]
     Active Substance: PACLITAXEL
     Indication: Breast cancer
     Dosage: 140 MILLIGRAM,QW,(START OF THERAPY 07/12/2024 - WEEKLY THERAPY - X WEEK)
     Route: 042
     Dates: start: 20240223, end: 20240223

REACTIONS (3)
  - Leukopenia [Recovering/Resolving]
  - Neutropenia [Recovering/Resolving]
  - Off label use [Recovering/Resolving]

NARRATIVE: CASE EVENT DATE: 20240223
